FAERS Safety Report 6157409-8 (Version None)
Quarter: 2009Q2

REPORT INFORMATION
  Report Type: 
  Country: None (occurrence: None)
  Receive Date: 20090416
  Receipt Date: 20090407
  Transmission Date: 20091009
  Serious: Yes (Hospitalization)
  Sender: FDA-Public Use
  Company Number: FR-PFIZER INC-2009194108

PATIENT

DRUGS (11)
  1. AMLODIPINE BESYLATE [Suspect]
     Dosage: 1 DF, 1X/DAY
     Route: 048
  2. DETENSIEL [Suspect]
     Dosage: 1 DF, 1X/DAY
     Route: 048
  3. EUPRESSYL [Suspect]
     Dosage: 1 DF, 1X/DAY
     Route: 048
  4. CORVASAL [Suspect]
     Dosage: 1 DF, 1X/DAY
     Route: 048
  5. NITRODERM [Suspect]
     Dosage: 1 DF, 1X/DAY
     Route: 048
  6. HYPERIUM [Suspect]
     Dosage: 1 DF, 1X/DAY
     Route: 048
  7. LASIX [Suspect]
     Dosage: 1 DF, 1X/DAY
     Route: 048
  8. COAPROVEL [Suspect]
     Dosage: 1 DF, 1X/DAY
     Route: 048
  9. INIPOMP [Concomitant]
  10. KARDEGIC [Concomitant]
  11. INSULIN [Concomitant]

REACTIONS (3)
  - FALL [None]
  - FEMUR FRACTURE [None]
  - ORTHOSTATIC HYPOTENSION [None]
